FAERS Safety Report 9724516 (Version 2)
Quarter: 2013Q4

REPORT INFORMATION
  Report Type: Spontaneous
  Country: US (occurrence: US)
  Receive Date: 20131202
  Receipt Date: 20131202
  Transmission Date: 20140711
  Serious: No
  Sender: FDA-Public Use
  Company Number: US-AMGEN-USASP2013079614

PATIENT
  Age: 55 Year
  Sex: Female

DRUGS (4)
  1. ENBREL [Suspect]
     Indication: RHEUMATOID ARTHRITIS
     Dosage: 50 MG, QWK
     Route: 058
     Dates: start: 20130910, end: 20131112
  2. IBUPROFEN [Concomitant]
     Indication: OSTEOARTHRITIS
     Dosage: 80 MG, TID
     Route: 048
  3. ALPHAGAN [Concomitant]
     Indication: GLAUCOMA
     Dosage: 1 QTT, QD
     Route: 061
  4. TIMOLOL [Concomitant]
     Indication: GLAUCOMA
     Dosage: 1 QTT, QD
     Route: 061

REACTIONS (9)
  - Pruritus generalised [Not Recovered/Not Resolved]
  - Urticaria [Not Recovered/Not Resolved]
  - Rash generalised [Not Recovered/Not Resolved]
  - Injection site scab [Not Recovered/Not Resolved]
  - Contusion [Recovered/Resolved]
  - Injection site injury [Not Recovered/Not Resolved]
  - Injection site reaction [Not Recovered/Not Resolved]
  - Injection site pruritus [Not Recovered/Not Resolved]
  - Injection site swelling [Not Recovered/Not Resolved]
